FAERS Safety Report 8819454 (Version 4)
Quarter: 2012Q4

REPORT INFORMATION
  Report Type: 
  Country: US (occurrence: US)
  Receive Date: 20121001
  Receipt Date: 20121228
  Transmission Date: 20130627
  Serious: Yes (Death)
  Sender: FDA-Public Use
  Company Number: US-BIOGENIDEC-2012BI039887

PATIENT
  Age: 55 Year
  Sex: Female

DRUGS (5)
  1. TYSABRI [Suspect]
     Indication: MULTIPLE SCLEROSIS
     Route: 042
     Dates: start: 20120120, end: 20120807
  2. MIRTAZAPINE [Concomitant]
     Indication: INSOMNIA
  3. LEVOFLOXACIN [Concomitant]
     Indication: URINARY TRACT INFECTION
  4. OMEPRAZOLE [Concomitant]
     Indication: GASTROOESOPHAGEAL REFLUX DISEASE
  5. DEPAKOTE [Concomitant]

REACTIONS (1)
  - Arrhythmia [Fatal]
